FAERS Safety Report 12773248 (Version 1)
Quarter: 2016Q3

REPORT INFORMATION
  Report Type: Spontaneous
  Country: US (occurrence: US)
  Receive Date: 20160922
  Receipt Date: 20160922
  Transmission Date: 20161109
  Serious: No
  Sender: FDA-Public Use
  Company Number: US-ENDO PHARMACEUTICALS INC.-2016-004069

PATIENT
  Sex: Female

DRUGS (3)
  1. SPIRONOLACTONE TABLETS 50MG [Suspect]
     Active Substance: SPIRONOLACTONE
     Route: 048
     Dates: start: 2007
  2. SPIRONOLACTONE TABLETS 50MG [Suspect]
     Active Substance: SPIRONOLACTONE
     Indication: INSULIN RESISTANCE
     Route: 048
     Dates: start: 2006, end: 2007
  3. SPIRONOLACTONE TABLETS 50MG [Suspect]
     Active Substance: SPIRONOLACTONE
     Route: 048
     Dates: start: 2007, end: 2007

REACTIONS (6)
  - Rash [Not Recovered/Not Resolved]
  - Reaction to drug excipients [Recovered/Resolved]
  - Off label use [Unknown]
  - Fluid retention [Recovered/Resolved]
  - Swelling face [Not Recovered/Not Resolved]
  - Hair texture abnormal [Recovered/Resolved]

NARRATIVE: CASE EVENT DATE: 2006
